FAERS Safety Report 16352084 (Version 1)
Quarter: 2019Q2

REPORT INFORMATION
  Report Type: Spontaneous
  Country: US (occurrence: US)
  Receive Date: 20190524
  Receipt Date: 20190524
  Transmission Date: 20190711
  Serious: No
  Sender: FDA-Public Use
  Company Number: US-NOVEN PHARMACEUTICALS, INC.-US2019000167

PATIENT

DRUGS (1)
  1. DAYTRANA [Suspect]
     Active Substance: METHYLPHENIDATE
     Indication: ATTENTION DEFICIT/HYPERACTIVITY DISORDER
     Dosage: 20 MG, QD FOR 9 HOURS
     Route: 062
     Dates: start: 2018

REACTIONS (9)
  - Product quality issue [Recovered/Resolved]
  - Drug ineffective [Recovered/Resolved]
  - Decreased appetite [Recovered/Resolved]
  - Application site pruritus [Unknown]
  - Weight decreased [Not Recovered/Not Resolved]
  - Psychomotor hyperactivity [Unknown]
  - Application site erythema [Unknown]
  - Hyperphagia [Unknown]
  - Application site irritation [Unknown]

NARRATIVE: CASE EVENT DATE: 2018
